FAERS Safety Report 5238245-3 (Version None)
Quarter: 2007Q1

REPORT INFORMATION
  Report Type: 
  Country: None (occurrence: None)
  Receive Date: 20070215
  Receipt Date: 20070205
  Transmission Date: 20070707
  Serious: Yes (Hospitalization)
  Sender: FDA-Public Use
  Company Number: ES-AVENTIS-200710608EU

PATIENT
  Age: 72 Year
  Sex: Male
  Weight: 71 kg

DRUGS (4)
  1. CLEXANE [Suspect]
     Route: 058
     Dates: start: 20060831, end: 20061010
  2. CLEXANE [Suspect]
     Route: 058
     Dates: start: 20060831, end: 20061010
  3. TIENAM [Suspect]
     Route: 042
     Dates: start: 20060819, end: 20060819
  4. NEXIUM [Suspect]
     Route: 048
     Dates: start: 20060902, end: 20060921

REACTIONS (2)
  - GRANULOCYTOPENIA [None]
  - NEUTROPENIA [None]
